FAERS Safety Report 14747409 (Version 2)
Quarter: 2018Q4

REPORT INFORMATION
  Report Type: Spontaneous
  Country: DE (occurrence: DE)
  Receive Date: 20180411
  Receipt Date: 20181019
  Transmission Date: 20190204
  Serious: Yes (Other)
  Sender: FDA-Public Use
  Company Number: DE-SEPTODONT-201804600

PATIENT
  Age: 38 Year
  Sex: Male

DRUGS (2)
  1. EPINEPHRINE. [Suspect]
     Active Substance: EPINEPHRINE
     Indication: INFILTRATION ANAESTHESIA
     Dosage: 1:100,000 WAS INJECTED INTO THE LEFT UPPER JAW.
  2. ARTICAINE HYDROCHLORIDE [Concomitant]
     Active Substance: ARTICAINE HYDROCHLORIDE
     Indication: INFILTRATION ANAESTHESIA

REACTIONS (3)
  - Retinal artery occlusion [Recovered/Resolved]
  - Papilloedema [Recovered/Resolved]
  - Incorrect route of product administration [Recovered/Resolved]
